FAERS Safety Report 7231660-8 (Version None)
Quarter: 2011Q1

REPORT INFORMATION
  Report Type: 
  Country: None (occurrence: None)
  Receive Date: 20110118
  Receipt Date: 20110111
  Transmission Date: 20110831
  Serious: Yes (Other)
  Sender: FDA-Public Use
  Company Number: CZ-CEPHALON-2011000191

PATIENT
  Sex: Male

DRUGS (11)
  1. PURINOL [Concomitant]
     Dates: start: 20101026, end: 20101119
  2. HERPESIN [Concomitant]
     Dates: start: 20101117, end: 20101121
  3. B-KOMPLEX [Concomitant]
     Dates: start: 20101027, end: 20101121
  4. SUMETROLIM [Concomitant]
     Dates: start: 20101022, end: 20101107
  5. COTRIM [Concomitant]
  6. THIAMINE HCL [Concomitant]
     Dates: start: 20101122, end: 20101208
  7. DISULONE [Concomitant]
     Dates: start: 20101111
  8. TRISENOX [Suspect]
     Indication: ACUTE PROMYELOCYTIC LEUKAEMIA
     Route: 041
     Dates: start: 20101025, end: 20101203
  9. MYCOMAX [Concomitant]
     Dates: start: 20101022
  10. CIPRINOL [Concomitant]
     Dates: start: 20101022, end: 20101125
  11. HELICID [Concomitant]
     Dates: start: 20101025, end: 20101208

REACTIONS (1)
  - DRUG ERUPTION [None]
